FAERS Safety Report 7194414-7 (Version None)
Quarter: 2010Q4

REPORT INFORMATION
  Report Type: 
  Country: None (occurrence: None)
  Receive Date: 20101223
  Receipt Date: 20101213
  Transmission Date: 20110411
  Serious: Yes (Other)
  Sender: FDA-Public Use
  Company Number: FR-SANOFI-AVENTIS-200319803GDDC

PATIENT
  Age: 76 Year
  Sex: Male

DRUGS (2)
  1. RIFAMPICIN [Suspect]
     Indication: TUBERCULOSIS
     Dosage: DOSE AS USED: UNK
  2. ISONIAZID [Suspect]
     Indication: TUBERCULOSIS

REACTIONS (3)
  - THROMBOCYTOPENIA [None]
  - THROMBOCYTOPENIC PURPURA [None]
  - TYPE II HYPERSENSITIVITY [None]
